FAERS Safety Report 14281664 (Version 1)
Quarter: 2017Q4

REPORT INFORMATION
  Report Type: Spontaneous
  Country: US (occurrence: US)
  Receive Date: 20171213
  Receipt Date: 20171213
  Transmission Date: 20180321
  Serious: Yes (Death)
  Sender: FDA-Public Use
  Company Number: US-PERRIGO-17US030957

PATIENT
  Age: 34 Year
  Sex: Male

DRUGS (1)
  1. LOPERAMIDE HYDROCHLORIDE. [Suspect]
     Active Substance: LOPERAMIDE HYDROCHLORIDE
     Indication: INTENTIONAL PRODUCT MISUSE
     Dosage: 200 MG, QD
     Route: 048

REACTIONS (14)
  - Vomiting [Unknown]
  - Electrocardiogram QT prolonged [Fatal]
  - Ventricular tachycardia [Fatal]
  - Myoclonus [Fatal]
  - Anal incontinence [Unknown]
  - Brain injury [Fatal]
  - Ventricular fibrillation [Fatal]
  - Partial seizures [Fatal]
  - Syncope [Unknown]
  - Dyskinesia [Unknown]
  - Cardio-respiratory arrest [Fatal]
  - Encephalopathy [Fatal]
  - Autonomic nervous system imbalance [Fatal]
  - Decorticate posture [Fatal]
